FAERS Safety Report 5010740-1 (Version None)
Quarter: 2006Q2

REPORT INFORMATION
  Report Type: 
  Country: None (occurrence: None)
  Receive Date: 20060523
  Receipt Date: 20060511
  Transmission Date: 20061013
  Serious: Yes (Hospitalization, Other)
  Sender: FDA-Public Use
  Company Number: HQWYE562727JUL05

PATIENT
  Age: 46 Year
  Sex: Male

DRUGS (14)
  1. PROGRAF [Suspect]
     Indication: PROPHYLAXIS AGAINST TRANSPLANT REJECTION
     Dosage: SEE IMAGE, ORAL
     Route: 048
     Dates: start: 20050311, end: 20050721
  2. PROGRAF [Suspect]
     Indication: PROPHYLAXIS AGAINST TRANSPLANT REJECTION
     Dosage: SEE IMAGE, ORAL
     Route: 048
     Dates: start: 20050722, end: 20050722
  3. PROGRAF [Suspect]
     Indication: PROPHYLAXIS AGAINST TRANSPLANT REJECTION
     Dosage: SEE IMAGE, ORAL
     Route: 048
     Dates: start: 20050723
  4. CELLCEPT [Suspect]
     Indication: PROPHYLAXIS AGAINST TRANSPLANT REJECTION
     Dosage: 1 G 2X PER 1 DAY
     Dates: start: 20050722
  5. PREDNISONE TAB [Concomitant]
  6. BACTRIM [Concomitant]
  7. MYCELEX [Concomitant]
  8. VALCYTE [Concomitant]
  9. NEXIUM [Concomitant]
  10. CLONIDINE [Concomitant]
  11. LANTUS [Concomitant]
  12. HUMALOG [Concomitant]
  13. LOPRESSOR [Concomitant]
  14. ZENAPAX [Concomitant]

REACTIONS (6)
  - BLOOD CALCIUM INCREASED [None]
  - BLOOD PRESSURE INCREASED [None]
  - KIDNEY TRANSPLANT REJECTION [None]
  - NEUROTOXICITY [None]
  - RENAL ARTERY STENOSIS [None]
  - RENAL FAILURE ACUTE [None]
